FAERS Safety Report 9038989 (Version 1)
Quarter: 2013Q1

REPORT INFORMATION
  Report Type: Spontaneous
  Country: US (occurrence: None)
  Receive Date: 20130122
  Receipt Date: 20130122
  Transmission Date: 20140127
  Serious: Yes (Other)
  Sender: FDA-Public Use
  Company Number: None

PATIENT
  Sex: Male
  Weight: 81.65 kg

DRUGS (1)
  1. PROPECIA [Suspect]
     Indication: ALOPECIA
     Dosage: 1MG 1
     Dates: start: 20010901, end: 20130121

REACTIONS (4)
  - Feeling abnormal [None]
  - Amnesia [None]
  - Mental impairment [None]
  - Thinking abnormal [None]
